FAERS Safety Report 5597319-8 (Version None)
Quarter: 2008Q1

REPORT INFORMATION
  Report Type: 
  Country: None (occurrence: None)
  Receive Date: 20080121
  Receipt Date: 20080111
  Transmission Date: 20080703
  Serious: Yes (Hospitalization)
  Sender: FDA-Public Use
  Company Number: US-JNJFOC-20071100792

PATIENT
  Sex: Female
  Weight: 43 kg

DRUGS (14)
  1. DOXORUBICIN HCL [Suspect]
     Indication: MULTIPLE MYELOMA
     Dosage: ADMINISTERED ON DAYS 1 AND 15 OF CYCLE
     Route: 042
  2. VELCADE [Suspect]
     Indication: MULTIPLE MYELOMA
     Dosage: ADMINISTERED ON DAYS 1, 4, 15 AND 18 OF CYCLE
     Route: 042
  3. THALIDOMIDE [Suspect]
     Indication: MULTIPLE MYELOMA
     Route: 048
  4. SENNA [Concomitant]
     Route: 065
  5. ACYCLOVIR [Concomitant]
     Route: 048
  6. BIOTENE [Concomitant]
     Route: 048
  7. COLACE [Concomitant]
     Route: 048
  8. COUDAMIN [Concomitant]
     Route: 048
  9. K-DUR 10 [Concomitant]
     Route: 048
  10. MAALOX [Concomitant]
     Route: 048
  11. MEGACE [Concomitant]
     Route: 048
  12. MORPHINE [Concomitant]
     Route: 048
  13. FISH OIL [Concomitant]
     Route: 048
  14. VITAMIN B-12 [Concomitant]
     Route: 048

REACTIONS (3)
  - ANAEMIA [None]
  - METABOLIC ACIDOSIS [None]
  - PNEUMONIA [None]
